FAERS Safety Report 8869567 (Version 1)
Quarter: 2012Q4

REPORT INFORMATION
  Report Type: Spontaneous
  Country: US (occurrence: None)
  Receive Date: 20121031
  Receipt Date: 20121031
  Transmission Date: 20130627
  Serious: No
  Sender: FDA-Public Use
  Company Number: None

PATIENT
  Sex: Male
  Weight: 110.22 kg

DRUGS (1)
  1. PREDNISONE ACETATE [Suspect]
     Indication: GLAUCOMA
     Dosage: 1 drop 4 times a day Ophthalmic
     Route: 047
     Dates: start: 20121019, end: 20121026

REACTIONS (5)
  - Vomiting [None]
  - Stupor [None]
  - Eye pruritus [None]
  - Neck pain [None]
  - Dyspnoea [None]
